FAERS Safety Report 6529011-7 (Version None)
Quarter: 2009Q4

REPORT INFORMATION
  Report Type: 
  Country: None (occurrence: None)
  Receive Date: 20091229
  Receipt Date: 20091222
  Transmission Date: 20100525
  Serious: Yes (Hospitalization)
  Sender: FDA-Public Use
  Company Number: PL-EBEWE-1984MTX09

PATIENT
  Age: 23 Year
  Sex: Female
  Weight: 68 kg

DRUGS (2)
  1. METHOTREXATE [Suspect]
     Indication: RHEUMATOID ARTHRITIS
     Dosage: 20 MG/DAY ORAL
     Route: 048
     Dates: start: 20070101, end: 20090101
  2. REMICADE [Suspect]
     Indication: RHEUMATOID ARTHRITIS
     Dosage: 200 MG/DAY IV
     Route: 042
     Dates: start: 20090527, end: 20090909

REACTIONS (3)
  - ERYTHEMA [None]
  - LEUKOPENIA [None]
  - THROMBOCYTOPENIA [None]
